FAERS Safety Report 16651668 (Version 1)
Quarter: 2019Q3

REPORT INFORMATION
  Report Type: Spontaneous
  Country: FR (occurrence: FR)
  Receive Date: 20190731
  Receipt Date: 20190731
  Transmission Date: 20191004
  Serious: Yes (Hospitalization)
  Sender: FDA-Public Use
  Company Number: FR-JNJFOC-20190732006

PATIENT
  Age: 37 Year
  Sex: Male
  Weight: 125 kg

DRUGS (4)
  1. THERALENE [Suspect]
     Active Substance: TRIMEPRAZINE
     Indication: BIPOLAR DISORDER
     Route: 048
     Dates: start: 20190620
  2. HALDOL DECANOAS [Suspect]
     Active Substance: HALOPERIDOL DECANOATE
     Indication: BIPOLAR DISORDER
     Route: 065
     Dates: start: 20190620
  3. TERALITHE [Suspect]
     Active Substance: LITHIUM CARBONATE
     Indication: BIPOLAR DISORDER
     Route: 048
     Dates: start: 2015
  4. SERESTA [Suspect]
     Active Substance: OXAZEPAM
     Indication: BIPOLAR DISORDER
     Route: 048
     Dates: start: 20190620

REACTIONS (2)
  - Catatonia [Recovering/Resolving]
  - Rhabdomyolysis [Recovering/Resolving]

NARRATIVE: CASE EVENT DATE: 20190622
